FAERS Safety Report 14339740 (Version 1)
Quarter: 2017Q4

REPORT INFORMATION
  Report Type: Spontaneous
  Country: None (occurrence: GB)
  Receive Date: 20171230
  Receipt Date: 20171230
  Transmission Date: 20180321
  Serious: Yes (Death, Hospitalization, Other)
  Sender: FDA-Public Use
  Company Number: GB-MERCK KGAA-2038048

PATIENT
  Age: 77 Year
  Sex: Female

DRUGS (3)
  1. DONEPEZIL. [Suspect]
     Active Substance: DONEPEZIL
  2. DONEPEZIL. [Suspect]
     Active Substance: DONEPEZIL
  3. NOVOTHYROX [Suspect]
     Active Substance: LEVOTHYROXINE SODIUM
     Indication: PRODUCT USED FOR UNKNOWN INDICATION

REACTIONS (4)
  - Acute kidney injury [Fatal]
  - Rhabdomyolysis [Fatal]
  - Hepatitis acute [Fatal]
  - Multiple organ dysfunction syndrome [Fatal]
